FAERS Safety Report 4499909-2 (Version None)
Quarter: 2004Q4

REPORT INFORMATION
  Report Type: 
  Country: None (occurrence: None)
  Receive Date: 20041108
  Receipt Date: 20041025
  Transmission Date: 20050328
  Serious: Yes (Other)
  Sender: FDA-Public Use
  Company Number: HQWYE665918JUN03

PATIENT
  Age: 81 Year
  Sex: Female

DRUGS (4)
  1. MINOCYCLINE HCL [Suspect]
     Indication: UPPER RESPIRATORY TRACT INFLAMMATION
     Route: 048
  2. MUCOSOLAVN (AMBOXOL HYDROCHLORIDE) [Concomitant]
  3. GEFANIL (GEFARNATE) [Concomitant]
  4. LAC B (LACTOBACILLUS BIFIDUS, LYPHILIZED) [Concomitant]

REACTIONS (1)
  - SHOCK [None]
